FAERS Safety Report 18339426 (Version 2)
Quarter: 2020Q4

REPORT INFORMATION
  Report Type: Spontaneous
  Country: EG (occurrence: EG)
  Receive Date: 20201002
  Receipt Date: 20201024
  Transmission Date: 20210113
  Serious: Yes (Other)
  Sender: FDA-Public Use
  Company Number: EG-NOVOPROD-756362

PATIENT
  Age: 420 Month
  Sex: Male
  Weight: 105 kg

DRUGS (5)
  1. ACTRAPID [Suspect]
     Active Substance: INSULIN HUMAN
     Dosage: 66 IU, QD (18-30-18)
     Route: 058
  2. CRESTOR [Concomitant]
     Active Substance: ROSUVASTATIN CALCIUM
     Indication: HYPERLIPIDAEMIA
     Dosage: 1TAB
     Route: 048
  3. MILGA [Concomitant]
     Active Substance: BENFOTIAMINE\CYANOCOBALAMIN\PYRIDOXINE HYDROCHLORIDE
     Indication: NEUROPATHY PERIPHERAL
     Dosage: 2 TAB -DAY, FROM MORE THAN 10 YEARS
     Route: 048
  4. THIOTACID COMPOUND [Concomitant]
     Indication: NEUROPATHY PERIPHERAL
     Dosage: 1TAB . FROM MORE THAN 10 YEARS
     Route: 048
  5. ACTRAPID [Suspect]
     Active Substance: INSULIN HUMAN
     Indication: TYPE 1 DIABETES MELLITUS
     Dosage: 64 IU, QD, (18-28-18)
     Route: 058

REACTIONS (2)
  - Lower limb fracture [Recovered/Resolved with Sequelae]
  - Accident [Recovered/Resolved with Sequelae]
